FAERS Safety Report 6984554-7 (Version None)
Quarter: 2010Q3

REPORT INFORMATION
  Report Type: 
  Country: None (occurrence: None)
  Receive Date: 20100915
  Receipt Date: 20100903
  Transmission Date: 20110219
  Serious: Yes (Other)
  Sender: FDA-Public Use
  Company Number: AT-PFIZER INC-2010101291

PATIENT
  Age: 70 Year
  Sex: Female
  Weight: 75 kg

DRUGS (2)
  1. SUTENT [Suspect]
     Indication: RENAL CELL CARCINOMA
     Dosage: 50 MG, 1X/DAY
     Route: 048
     Dates: start: 20100609, end: 20100629
  2. FORTECORTIN [Concomitant]
     Indication: PARESIS
     Dosage: 8 MG, 3X1
     Route: 042

REACTIONS (10)
  - ANAEMIA OF MALIGNANT DISEASE [None]
  - DEEP VEIN THROMBOSIS [None]
  - HAEMATOMA [None]
  - HAEMORRHAGE [None]
  - HAEMORRHAGIC ANAEMIA [None]
  - HERPES VIRUS INFECTION [None]
  - LEUKOPENIA [None]
  - ORAL HERPES [None]
  - PULMONARY EMBOLISM [None]
  - THROMBOCYTOPENIA [None]
